FAERS Safety Report 9525358 (Version 1)
Quarter: 2013Q3

REPORT INFORMATION
  Report Type: Spontaneous
  Country: US (occurrence: None)
  Receive Date: 20130912
  Receipt Date: 20130912
  Transmission Date: 20140515
  Serious: Yes (Hospitalization, Other)
  Sender: FDA-Public Use
  Company Number: USA/USA/13/0034487

PATIENT
  Age: 66 Year
  Sex: Female

DRUGS (10)
  1. CIPROFLOXACIN [Suspect]
     Indication: URINARY TRACT INFECTION
  2. CLOZAPINE [Suspect]
     Indication: SCHIZOPHRENIA, PARANOID TYPE
     Route: 048
  3. OMEPRAZOLE OMEPRAZOLE) [Concomitant]
  4. DONEPEZIL HYDROCHLORIDE (DONEPEZIL) [Concomitant]
  5. ESCITALOPRAM (ESCITALOPRAM) [Concomitant]
  6. LEVOTHYROXINE (LEVOTHYROXINE) [Concomitant]
  7. BUSPIRONE (BUSPIRONE) [Concomitant]
  8. DILTIAZEM [Concomitant]
  9. AZITHROMYCIN (AZITHROMYCIN) [Concomitant]
  10. ACETAMINOPHNE (PARACETAMOL) [Concomitant]

REACTIONS (4)
  - Drug interaction [None]
  - Neuroleptic malignant syndrome [None]
  - Pneumonia bacterial [None]
  - Urinary tract infection [None]
